FAERS Safety Report 11475286 (Version 1)
Quarter: 2015Q3

REPORT INFORMATION
  Report Type: Spontaneous
  Country: US (occurrence: None)
  Receive Date: 20150908
  Receipt Date: 20150908
  Transmission Date: 20151125
  Serious: Yes (Disabling)
  Sender: FDA-Public Use
  Company Number: None

PATIENT
  Age: 38 Year
  Sex: Female
  Weight: 65.77 kg

DRUGS (2)
  1. SERTRALINE [Suspect]
     Active Substance: SERTRALINE HYDROCHLORIDE
     Indication: DEPRESSION
     Dosage: 1.5 PILLS
     Route: 048
     Dates: start: 20150716, end: 20150903
  2. SERTRALINE [Suspect]
     Active Substance: SERTRALINE HYDROCHLORIDE
     Indication: ANXIETY
     Dosage: 1.5 PILLS
     Route: 048
     Dates: start: 20150716, end: 20150903

REACTIONS (7)
  - Syncope [None]
  - Palpitations [None]
  - Product substitution issue [None]
  - Blood pressure increased [None]
  - Anxiety [None]
  - Irritability [None]
  - Dizziness [None]

NARRATIVE: CASE EVENT DATE: 20150716
